FAERS Safety Report 13528360 (Version 5)
Quarter: 2018Q2

REPORT INFORMATION
  Report Type: Report from Study
  Country: US (occurrence: US)
  Receive Date: 20170509
  Receipt Date: 20180507
  Transmission Date: 20180711
  Serious: Yes (Other)
  Sender: FDA-Public Use
  Company Number: US-CELGENEUS-USA-20170500484

PATIENT
  Sex: Male
  Weight: 74.46 kg

DRUGS (4)
  1. VIDAZA [Suspect]
     Active Substance: AZACITIDINE
     Indication: MYELODYSPLASTIC SYNDROME
     Route: 065
     Dates: start: 20161128, end: 20170425
  2. VENOFER [Suspect]
     Active Substance: IRON SUCROSE
     Indication: ACUTE MYELOID LEUKAEMIA
     Route: 065
     Dates: start: 20151019, end: 20161227
  3. VENOFER [Suspect]
     Active Substance: IRON SUCROSE
     Route: 065
     Dates: end: 20170328
  4. NPLATE [Concomitant]
     Active Substance: ROMIPLOSTIM
     Indication: PRODUCT USED FOR UNKNOWN INDICATION
     Route: 065
     Dates: start: 20180316

REACTIONS (1)
  - Diarrhoea [Unknown]
